FAERS Safety Report 5324825-3 (Version None)
Quarter: 2007Q2

REPORT INFORMATION
  Report Type: 
  Country: None (occurrence: None)
  Receive Date: 20070515
  Receipt Date: 20070509
  Transmission Date: 20071010
  Serious: Yes (Other)
  Sender: FDA-Public Use
  Company Number: PHEH2007US07125

PATIENT
  Age: 44 Year
  Sex: Female

DRUGS (1)
  1. ZELNORM [Suspect]
     Indication: IRRITABLE BOWEL SYNDROME
     Route: 048
     Dates: start: 20061101, end: 20061201

REACTIONS (5)
  - DIARRHOEA [None]
  - FLUSHING [None]
  - HAEMATOCHEZIA [None]
  - PALPITATIONS [None]
  - VOMITING [None]
